FAERS Safety Report 11333254 (Version 1)
Quarter: 2015Q3

REPORT INFORMATION
  Report Type: Spontaneous
  Country: US (occurrence: US)
  Receive Date: 20150803
  Receipt Date: 20150803
  Transmission Date: 20151125
  Serious: Yes (Other)
  Sender: FDA-Public Use
  Company Number: US-GLAXOSMITHKLINE-US2015GSK110056

PATIENT
  Sex: Female

DRUGS (1)
  1. PROPAFENONE. [Suspect]
     Active Substance: PROPAFENONE
     Indication: HEART RATE IRREGULAR
     Dosage: 150 MG, UNK

REACTIONS (2)
  - Basal cell carcinoma [Unknown]
  - Surgery [Unknown]
